FAERS Safety Report 5682254-7 (Version None)
Quarter: 2008Q1

REPORT INFORMATION
  Report Type: 
  Country: None (occurrence: None)
  Receive Date: 20080326
  Receipt Date: 20080326
  Transmission Date: 20080703
  Serious: Yes (Other)
  Sender: FDA-Public Use
  Company Number: None

PATIENT
  Age: 62 Year
  Sex: Male

DRUGS (3)
  1. CETUXIMAB [Suspect]
     Dosage: 990MG (500MG/M2) EVERY 2 WEEKS
     Route: 042
     Dates: start: 20080219
  2. GEMCITABINE [Suspect]
  3. OXALIPLATIN [Suspect]

REACTIONS (1)
  - ANAPHYLACTIC REACTION [None]
